FAERS Safety Report 10506241 (Version 2)
Quarter: 2014Q4

REPORT INFORMATION
  Report Type: Report from Study
  Country: US (occurrence: US)
  Receive Date: 20141009
  Receipt Date: 20141009
  Transmission Date: 20150528
  Serious: Yes (Other)
  Sender: FDA-Public Use
  Company Number: US-AMGEN-USASP2014010542

PATIENT
  Age: 63 Year
  Sex: Female
  Weight: 65.76 kg

DRUGS (1)
  1. ENBREL [Suspect]
     Active Substance: ETANERCEPT
     Indication: RHEUMATOID ARTHRITIS
     Dosage: 50 MG, QWK
     Route: 058

REACTIONS (9)
  - Femur fracture [Recovered/Resolved]
  - Rash pruritic [Recovering/Resolving]
  - Cystitis [Unknown]
  - Upper respiratory tract infection [Unknown]
  - Spinal fusion surgery [Unknown]
  - Fatigue [Unknown]
  - Skin burning sensation [Recovering/Resolving]
  - Rash [Recovering/Resolving]
  - Productive cough [Recovering/Resolving]

NARRATIVE: CASE EVENT DATE: 2007
